FAERS Safety Report 14745348 (Version 4)
Quarter: 2018Q4

REPORT INFORMATION
  Report Type: Spontaneous
  Country: ES (occurrence: ES)
  Receive Date: 20180411
  Receipt Date: 20181017
  Transmission Date: 20190204
  Serious: Yes (Other)
  Sender: FDA-Public Use
  Company Number: ES-AUROBINDO-AUR-APL-2018-019132

PATIENT
  Age: 8 Year
  Sex: Male

DRUGS (8)
  1. OMEPRAZOLE. [Suspect]
     Active Substance: OMEPRAZOLE
     Indication: DIFFUSE CUTANEOUS MASTOCYTOSIS
     Dosage: 20 MILLIGRAM, DAILY
     Route: 065
  2. CETIRIZINE [Concomitant]
     Active Substance: CETIRIZINE HYDROCHLORIDE
     Indication: ABDOMINAL PAIN
  3. FLUNARIZINE [Concomitant]
     Active Substance: FLUNARIZINE
     Indication: INTUSSUSCEPTION
     Dosage: UNK
     Route: 065
  4. CETIRIZINE [Concomitant]
     Active Substance: CETIRIZINE HYDROCHLORIDE
     Indication: DIFFUSE CUTANEOUS MASTOCYTOSIS
     Dosage: 5 MILLIGRAM, DAILY
     Route: 065
  5. OMEPRAZOLE. [Suspect]
     Active Substance: OMEPRAZOLE
     Indication: ABDOMINAL PAIN
     Dosage: 40 MILLIGRAM, DAILY
     Route: 065
  6. SODIUM CROMOGLICATE [Concomitant]
     Active Substance: CROMOLYN SODIUM
     Indication: ABDOMINAL PAIN
     Dosage: 100 MILLIGRAM, 3 TIMES A DAY (8 H)
     Route: 048
  7. SODIUM CROMOGLICATE [Concomitant]
     Active Substance: CROMOLYN SODIUM
     Indication: DIFFUSE CUTANEOUS MASTOCYTOSIS
  8. FLUNARIZINE [Concomitant]
     Active Substance: FLUNARIZINE
     Indication: MIGRAINE

REACTIONS (4)
  - Intussusception [Unknown]
  - Product use in unapproved indication [Unknown]
  - Migraine [Unknown]
  - Hypertrichosis [Recovered/Resolved]
